FAERS Safety Report 7395015-8 (Version None)
Quarter: 2011Q1

REPORT INFORMATION
  Report Type: 
  Country: None (occurrence: None)
  Receive Date: 20110325
  Receipt Date: 20110117
  Transmission Date: 20110831
  Serious: Yes (Hospitalization)
  Sender: FDA-Public Use
  Company Number: WAES 1012USA03436

PATIENT
  Age: 65 Year
  Sex: Female

DRUGS (11)
  1. NOVALGIN [Concomitant]
  2. BLOOD CELLS, RED [Concomitant]
  3. DECADRON [Suspect]
     Indication: MULTIPLE MYELOMA
     Dosage: 20 MG, PO
     Route: 048
     Dates: start: 20100503, end: 20101214
  4. DECADRON [Suspect]
     Indication: MULTIPLE MYELOMA
     Dosage: 20 MG, PO
     Route: 048
     Dates: start: 20110103
  5. CIPROFLOXACIN [Concomitant]
  6. BORTEZOMIB [Suspect]
     Indication: MULTIPLE MYELOMA
     Dosage: 1.75,  MG, 1.0MG/M2  DAILY, IV
     Route: 042
     Dates: start: 20100201, end: 20101213
  7. BORTEZOMIB [Suspect]
     Indication: MULTIPLE MYELOMA
     Dosage: 1.75,  MG, 1.0MG/M2  DAILY, IV
     Route: 042
     Dates: start: 20110103
  8. CAP VORINOSTAT [Suspect]
     Indication: MULTIPLE MYELOMA
     Dosage: 300 MG, DAILY, PO
     Route: 048
     Dates: start: 20100201, end: 20101226
  9. CAP VORINOSTAT [Suspect]
     Indication: MULTIPLE MYELOMA
     Dosage: 300 MG, DAILY, PO
     Route: 048
     Dates: start: 20110103
  10. FRAXODI [Concomitant]
  11. MAGNESIUM [Concomitant]

REACTIONS (1)
  - PNEUMONIA [None]
